FAERS Safety Report 7251956-3 (Version None)
Quarter: 2011Q1

REPORT INFORMATION
  Report Type: 
  Country: None (occurrence: None)
  Receive Date: 20110128
  Receipt Date: 20100120
  Transmission Date: 20110831
  Serious: No
  Sender: FDA-Public Use
  Company Number: US-ABBOTT-09P-163-0615626-00

PATIENT
  Sex: Female
  Weight: 72.64 kg

DRUGS (4)
  1. ADDERALL 10 [Concomitant]
     Indication: ATTENTION DEFICIT/HYPERACTIVITY DISORDER
  2. HUMIRA [Suspect]
     Dates: start: 20091001, end: 20091218
  3. HUMIRA [Suspect]
     Indication: PSORIATIC ARTHROPATHY
     Dates: start: 20081002, end: 20091001
  4. ADDERALL 10 [Concomitant]
     Indication: FATIGUE

REACTIONS (3)
  - RASH PRURITIC [None]
  - SKIN WARM [None]
  - RASH PAPULAR [None]
